FAERS Safety Report 15016842 (Version 1)
Quarter: 2018Q2

REPORT INFORMATION
  Report Type: Spontaneous
  Country: US (occurrence: US)
  Receive Date: 20180615
  Receipt Date: 20180615
  Transmission Date: 20180711
  Serious: Yes (Other)
  Sender: FDA-Public Use
  Company Number: US-PFIZER INC-2018242984

PATIENT
  Age: 31 Year
  Sex: Male

DRUGS (3)
  1. PROCHLORPERAZINE. [Suspect]
     Active Substance: PROCHLORPERAZINE
     Dosage: 10 MG, UNK (FOR THE FIRST 6 DAYS OF CHEMOTHERAPY)
  2. ALLOPURINOL. [Suspect]
     Active Substance: ALLOPURINOL
     Dosage: UNK
  3. CYTARABINE. [Suspect]
     Active Substance: CYTARABINE
     Indication: T-CELL TYPE ACUTE LEUKAEMIA
     Dosage: TWELVE DOSES OF HIDAC, 3G/M2 GIVEN Q 12H

REACTIONS (1)
  - Hepatotoxicity [Unknown]
